FAERS Safety Report 5264175-7 (Version None)
Quarter: 2007Q1

REPORT INFORMATION
  Report Type: 
  Country: None (occurrence: None)
  Receive Date: 20070313
  Receipt Date: 20070306
  Transmission Date: 20070707
  Serious: Yes (Other)
  Sender: FDA-Public Use
  Company Number: JP-BOEHRINGER INGELHEIM PHARMACEUTICALS, INC.-2007-DE-01369GD

PATIENT
  Age: 45 Year
  Sex: Male

DRUGS (4)
  1. MEXILETINE HYDROCHLORIDE [Suspect]
     Indication: CARDIAC FAILURE
     Dates: start: 19970605, end: 19971201
  2. ASPIRIN [Concomitant]
     Indication: CARDIAC FAILURE
     Dates: start: 19970605, end: 19971201
  3. WARFARIN POTASSIUM [Concomitant]
     Indication: CARDIAC FAILURE
     Dates: start: 19970605, end: 19971201
  4. DIGOXIN [Concomitant]
     Indication: CARDIAC FAILURE
     Dates: start: 19970605

REACTIONS (7)
  - DRUG ERUPTION [None]
  - DRUG HYPERSENSITIVITY [None]
  - HEPATITIS [None]
  - LYMPHADENOPATHY [None]
  - LYMPHOCYTOSIS [None]
  - PYREXIA [None]
  - RASH GENERALISED [None]
